FAERS Safety Report 19062412 (Version 1)
Quarter: 2021Q1

REPORT INFORMATION
  Report Type: Spontaneous
  Country: US (occurrence: US)
  Receive Date: 20210325
  Receipt Date: 20210325
  Transmission Date: 20210420
  Serious: No
  Sender: FDA-Public Use
  Company Number: None

PATIENT
  Age: 49 Year
  Sex: Female

DRUGS (1)
  1. XELJANZ XR [Suspect]
     Active Substance: TOFACITINIB CITRATE
     Indication: CONNECTIVE TISSUE DISORDER
     Route: 048
     Dates: start: 20190514

REACTIONS (3)
  - Therapy cessation [None]
  - Therapeutic product effect decreased [None]
  - Constipation [None]

NARRATIVE: CASE EVENT DATE: 20190514
